FAERS Safety Report 21561678 (Version 2)
Quarter: 2022Q4

REPORT INFORMATION
  Report Type: Spontaneous
  Country: JP (occurrence: JP)
  Receive Date: 20221107
  Receipt Date: 20221114
  Transmission Date: 20230113
  Serious: Yes (Death, Other)
  Sender: FDA-Public Use
  Company Number: JP-OTSUKA-2022_050895

PATIENT
  Age: 83 Year
  Sex: Female

DRUGS (3)
  1. TOLVAPTAN [Suspect]
     Active Substance: TOLVAPTAN
     Indication: Cardiac failure chronic
     Dosage: 8 MG, QD
     Route: 041
     Dates: start: 20221027, end: 20221027
  2. TOLVAPTAN [Suspect]
     Active Substance: TOLVAPTAN
     Indication: Pleural effusion
  3. FUROSEMIDE [Concomitant]
     Active Substance: FUROSEMIDE
     Indication: Polyuria
     Dosage: 20 MG/DAY, DAILY
     Route: 042
     Dates: start: 20221026, end: 20221027

REACTIONS (4)
  - Hepatic cancer metastatic [Fatal]
  - Hepatic failure [Unknown]
  - Jaundice [Unknown]
  - Blood creatinine increased [Unknown]

NARRATIVE: CASE EVENT DATE: 20221027
